FAERS Safety Report 7598521-6 (Version None)
Quarter: 2011Q3

REPORT INFORMATION
  Report Type: 
  Country: None (occurrence: None)
  Receive Date: 20110708
  Receipt Date: 20110705
  Transmission Date: 20111222
  Serious: Yes (Hospitalization)
  Sender: FDA-Public Use
  Company Number: US-ELI_LILLY_AND_COMPANY-US201007005280

PATIENT
  Sex: Male
  Weight: 115.65 kg

DRUGS (8)
  1. AMARYL [Concomitant]
     Indication: DIABETES MELLITUS
  2. DILTIAZEM [Concomitant]
     Indication: BLOOD CALCIUM
  3. FUROSEMIDE [Concomitant]
     Indication: DIURETIC THERAPY
  4. SPIRONOLACTONE [Concomitant]
     Indication: HYPERTENSION
  5. NITROGLYCERIN [Concomitant]
     Indication: BLOOD UREA INCREASED
  6. LOVAZA [Concomitant]
     Indication: LIPIDS INCREASED
  7. BYETTA [Suspect]
     Dosage: UNK
     Dates: start: 20080101, end: 20080801
  8. BYETTA [Suspect]
     Dosage: UNK
     Dates: start: 20050101, end: 20060101

REACTIONS (2)
  - PANCREATITIS ACUTE [None]
  - OFF LABEL USE [None]
